FAERS Safety Report 5595346-8 (Version None)
Quarter: 2008Q1

REPORT INFORMATION
  Report Type: 
  Country: None (occurrence: None)
  Receive Date: 20080117
  Receipt Date: 20080109
  Transmission Date: 20080703
  Serious: Yes (Hospitalization)
  Sender: FDA-Public Use
  Company Number: PFIZER INC-2008002495

PATIENT
  Age: 62 Year
  Sex: Female
  Weight: 83 kg

DRUGS (8)
  1. EXEMESTANE [Suspect]
     Indication: BREAST CANCER
     Route: 048
     Dates: start: 20050203, end: 20071223
  2. TEVETEN [Concomitant]
     Indication: HYPERTENSION
     Route: 048
  3. NOVOLOG [Concomitant]
     Indication: DIABETES MELLITUS
     Dosage: FREQ:6 UNIT/HOUR
  4. ZETIA [Concomitant]
     Dosage: DAILY DOSE:10MG-FREQ:EVERY DAY
     Route: 048
  5. LANSOPRAZOLE [Concomitant]
     Dosage: DAILY DOSE:30MG-FREQ:EVERY DAY
     Route: 048
  6. METOCLOPRAMIDE [Concomitant]
     Dosage: DAILY DOSE:10MG-FREQ:BID
     Route: 048
  7. CALCIUM GLUCONATE [Concomitant]
     Dosage: DAILY DOSE:1200MG-FREQ:EVERY DAY
  8. OXYGEN [Concomitant]
     Indication: SLEEP APNOEA SYNDROME
     Dosage: FREQ:2 LITERS AT BEDTIME
     Route: 045

REACTIONS (1)
  - ACUTE MYOCARDIAL INFARCTION [None]
